FAERS Safety Report 11333201 (Version 1)
Quarter: 2015Q3

REPORT INFORMATION
  Report Type: Spontaneous
  Country: US (occurrence: US)
  Receive Date: 20150803
  Receipt Date: 20150803
  Transmission Date: 20151125
  Serious: No
  Sender: FDA-Public Use
  Company Number: US-ELI_LILLY_AND_COMPANY-US200708001352

PATIENT
  Age: 44 Year
  Sex: Male
  Weight: 108.84 kg

DRUGS (8)
  1. ZYPREXA [Suspect]
     Active Substance: OLANZAPINE
     Dosage: 20 MG, UNK
     Dates: start: 20050119
  2. ZYPREXA [Suspect]
     Active Substance: OLANZAPINE
     Dosage: 10 MG, UNK
     Dates: start: 20050301, end: 20060105
  3. ABILIFY [Concomitant]
     Active Substance: ARIPIPRAZOLE
     Dates: start: 20030108, end: 20030709
  4. ZYPREXA [Suspect]
     Active Substance: OLANZAPINE
     Dosage: 5 MG, UNK
     Dates: end: 20070109
  5. PAXIL [Concomitant]
     Active Substance: PAROXETINE HYDROCHLORIDE
     Dates: start: 20030108, end: 20050105
  6. RISPERDAL [Concomitant]
     Active Substance: RISPERIDONE
     Dates: start: 20060306, end: 20070501
  7. PAXIL [Concomitant]
     Active Substance: PAROXETINE HYDROCHLORIDE
     Dates: start: 20050301, end: 20061004
  8. ZYPREXA [Suspect]
     Active Substance: OLANZAPINE
     Indication: MAJOR DEPRESSION
     Dosage: 2.5 MG, UNK
     Dates: start: 20030108

REACTIONS (5)
  - Blood cholesterol abnormal [Not Recovered/Not Resolved]
  - Blood triglycerides increased [Not Recovered/Not Resolved]
  - Hyperglycaemia [Unknown]
  - Weight increased [Not Recovered/Not Resolved]
  - Type 2 diabetes mellitus [Not Recovered/Not Resolved]

NARRATIVE: CASE EVENT DATE: 200705
